FAERS Safety Report 6828035-X (Version None)
Quarter: 2010Q3

REPORT INFORMATION
  Report Type: 
  Country: None (occurrence: None)
  Receive Date: 20100709
  Receipt Date: 20100702
  Transmission Date: 20110219
  Serious: Yes (Other)
  Sender: FDA-Public Use
  Company Number: B0595743A

PATIENT
  Age: 38 Year
  Sex: Female

DRUGS (3)
  1. BECOTIDE [Suspect]
     Dosage: 2PUFF THREE TIMES PER DAY
     Route: 055
     Dates: start: 20090101, end: 20100215
  2. VENTOLIN [Suspect]
     Dosage: 2PUFF THREE TIMES PER DAY
     Route: 055
     Dates: start: 20090101, end: 20100215
  3. CETIRIZINE HCL [Suspect]
     Dosage: 10MG PER DAY
     Route: 065

REACTIONS (3)
  - ASTHMA [None]
  - DRUG EXPOSURE DURING PREGNANCY [None]
  - LIVE BIRTH [None]
